FAERS Safety Report 16747109 (Version 1)
Quarter: 2019Q3

REPORT INFORMATION
  Report Type: Spontaneous
  Country: US (occurrence: US)
  Receive Date: 20190709
  Receipt Date: 20190709
  Transmission Date: 20191005
  Serious: Yes (Life-Threatening, Hospitalization, Disabling, Other)
  Sender: FDA-Public Use
  Company Number: None

PATIENT
  Age: 55 Year
  Sex: Female
  Weight: 75.3 kg

DRUGS (6)
  1. GABAPENTIN. [Suspect]
     Active Substance: GABAPENTIN
     Indication: HEAD INJURY
     Dosage: ?          QUANTITY:300 MG/KG MILLIGRAM(S)/KILOGRAM;?
     Route: 048
  2. FISH OIL [Concomitant]
     Active Substance: FISH OIL
  3. CRANBERRIES [Concomitant]
  4. VITAMIN [Concomitant]
     Active Substance: VITAMINS
  5. DAILY VITAMIN B [Concomitant]
  6. CHAMIMILE TEA [Concomitant]

REACTIONS (16)
  - Urticaria [None]
  - Victim of abuse [None]
  - Gait disturbance [None]
  - Malaise [None]
  - Depression [None]
  - Vision blurred [None]
  - Abdominal pain [None]
  - Hyperhidrosis [None]
  - Suicidal ideation [None]
  - Mood altered [None]
  - Amnesia [None]
  - Infection [None]
  - Dyspnoea [None]
  - Vomiting [None]
  - Influenza like illness [None]
  - Balance disorder [None]
